FAERS Safety Report 24439278 (Version 4)
Quarter: 2025Q1

REPORT INFORMATION
  Report Type: Spontaneous
  Country: US (occurrence: US)
  Receive Date: 20241015
  Receipt Date: 20250312
  Transmission Date: 20250409
  Serious: Yes (Other)
  Sender: JOHNSON AND JOHNSON
  Company Number: US-JNJFOC-20241026500

PATIENT
  Age: 46 Year
  Sex: Male

DRUGS (7)
  1. UPTRAVI [Suspect]
     Active Substance: SELEXIPAG
     Indication: Product used for unknown indication
     Route: 048
  2. OPSUMIT [Suspect]
     Active Substance: MACITENTAN
     Indication: Product used for unknown indication
     Route: 048
     Dates: start: 202209
  3. TREPROSTINIL SODIUM [Suspect]
     Active Substance: TREPROSTINIL SODIUM
     Indication: Pulmonary arterial hypertension
     Route: 041
     Dates: start: 202406
  4. TREPROSTINIL SODIUM [Suspect]
     Active Substance: TREPROSTINIL SODIUM
     Route: 041
     Dates: start: 20240703
  5. SOTATERCEPT [Suspect]
     Active Substance: SOTATERCEPT
     Indication: Product used for unknown indication
     Route: 065
     Dates: start: 2024
  6. TADALAFIL [Concomitant]
     Active Substance: TADALAFIL
  7. TORSEMIDE [Concomitant]
     Active Substance: TORSEMIDE

REACTIONS (17)
  - Pneumonia [Recovered/Resolved]
  - Joint swelling [Not Recovered/Not Resolved]
  - Dyspnoea exertional [Unknown]
  - Arthralgia [Unknown]
  - Arthralgia [Unknown]
  - Pain in extremity [Not Recovered/Not Resolved]
  - Nausea [Unknown]
  - Diarrhoea [Not Recovered/Not Resolved]
  - Pain in jaw [Unknown]
  - Dizziness [Not Recovered/Not Resolved]
  - Headache [Unknown]
  - Oxygen therapy [Unknown]
  - Fatigue [Unknown]
  - Product dose omission issue [Unknown]
  - Peripheral swelling [Unknown]
  - Decreased activity [Unknown]
  - Therapy change [Unknown]

NARRATIVE: CASE EVENT DATE: 20240101
